FAERS Safety Report 10182205 (Version 1)
Quarter: 2014Q2

REPORT INFORMATION
  Report Type: Spontaneous
  Country: US (occurrence: US)
  Receive Date: 20140520
  Receipt Date: 20140520
  Transmission Date: 20141212
  Serious: No
  Sender: FDA-Public Use
  Company Number: US-BIOGENIDEC-2013BI005562

PATIENT
  Age: 46 Year
  Sex: Female

DRUGS (3)
  1. AVONEX [Suspect]
     Indication: MULTIPLE SCLEROSIS
     Route: 030
     Dates: start: 20120326, end: 201206
  2. AVONEX [Suspect]
     Indication: MULTIPLE SCLEROSIS
     Route: 030
     Dates: start: 201206
  3. ALEVE [Concomitant]
     Indication: PREMEDICATION
     Dates: start: 2012

REACTIONS (8)
  - Vision blurred [Not Recovered/Not Resolved]
  - Osteoarthritis [Not Recovered/Not Resolved]
  - Injection site haemorrhage [Recovered/Resolved]
  - Influenza like illness [Recovered/Resolved]
  - Muscle spasticity [Not Recovered/Not Resolved]
  - Pain in extremity [Not Recovered/Not Resolved]
  - Paraesthesia [Recovered/Resolved]
  - Musculoskeletal stiffness [Not Recovered/Not Resolved]
